FAERS Safety Report 4302448-2 (Version None)
Quarter: 2004Q1

REPORT INFORMATION
  Report Type: 
  Country: None (occurrence: None)
  Receive Date: 20040220
  Receipt Date: 20040209
  Transmission Date: 20041129
  Serious: Yes (Death, Other)
  Sender: FDA-Public Use
  Company Number: ES-JNJFOC-20040202599

PATIENT
  Age: 46 Year
  Sex: Female

DRUGS (1)
  1. INFLIXIMAB (INFLIXIMAB, RECOMBINANT) LYOPHILIZED POWDER [Suspect]
     Indication: CROHN'S DISEASE
     Dosage: 225 MG, INTRAVENOUS
     Route: 042

REACTIONS (6)
  - DERMATITIS PSORIASIFORM [None]
  - DRUG INEFFECTIVE [None]
  - ISCHAEMIC CEREBRAL INFARCTION [None]
  - LEUKOCYTOSIS [None]
  - RED BLOOD CELL SEDIMENTATION RATE INCREASED [None]
  - THROMBOCYTHAEMIA [None]
